FAERS Safety Report 8061827-0 (Version None)
Quarter: 2012Q1

REPORT INFORMATION
  Report Type: 
  Country: None (occurrence: None)
  Receive Date: 20120123
  Receipt Date: 20120118
  Transmission Date: 20120608
  Serious: No
  Sender: FDA-Public Use
  Company Number: US-PFIZER INC-2012015521

PATIENT
  Sex: Female

DRUGS (1)
  1. CHANTIX [Suspect]
     Indication: SMOKING CESSATION THERAPY
     Dosage: UNK
     Dates: start: 20120101

REACTIONS (6)
  - PAIN IN EXTREMITY [None]
  - NECK PAIN [None]
  - LOCAL SWELLING [None]
  - INFLUENZA [None]
  - ARTHRALGIA [None]
  - CONFUSIONAL STATE [None]
